FAERS Safety Report 10250037 (Version 1)
Quarter: 2014Q2

REPORT INFORMATION
  Report Type: Spontaneous
  Country: US (occurrence: US)
  Receive Date: 20140620
  Receipt Date: 20140620
  Transmission Date: 20141212
  Serious: No
  Sender: FDA-Public Use
  Company Number: US-BRISTOL-MYERS SQUIBB COMPANY-20596342

PATIENT
  Age: 74 Year
  Sex: Female
  Weight: 46.26 kg

DRUGS (6)
  1. ELIQUIS [Suspect]
     Dosage: 2K73237A,OCT-2015?2J69973A,SEP2015?NO OF DOSES-8
  2. SYNTHROID [Concomitant]
     Dosage: EVERY MORNING
  3. RYTHMOL [Concomitant]
     Indication: ATRIAL FIBRILLATION
  4. PROTONIX [Concomitant]
  5. XANAX [Concomitant]
     Dosage: IN THE EVENING
  6. VITAMIN B12 [Concomitant]

REACTIONS (2)
  - Feeling abnormal [Unknown]
  - Off label use [Unknown]
